FAERS Safety Report 16225652 (Version 30)
Quarter: 2024Q4

REPORT INFORMATION
  Report Type: Report from Study
  Country: CA (occurrence: CA)
  Receive Date: 20190422
  Receipt Date: 20241204
  Transmission Date: 20250114
  Serious: Yes (Death, Hospitalization, Other)
  Sender: NOVARTIS
  Company Number: PHHY2017CA122289

PATIENT
  Age: 61 Year
  Sex: Female

DRUGS (11)
  1. SANDOSTATIN LAR DEPOT [Suspect]
     Active Substance: OCTREOTIDE ACETATE
     Indication: Carcinoid tumour
     Dosage: 30 MG, QMO (ONCE A MONTH)
     Route: 030
     Dates: start: 20170728
  2. SANDOSTATIN LAR DEPOT [Suspect]
     Active Substance: OCTREOTIDE ACETATE
  3. SANDOSTATIN LAR DEPOT [Suspect]
     Active Substance: OCTREOTIDE ACETATE
  4. PANTOPRAZOLE [Concomitant]
     Active Substance: PANTOPRAZOLE
     Indication: Product used for unknown indication
     Dosage: 40 MG, QD
     Route: 048
     Dates: start: 20211015
  5. PANTOPRAZOLE [Concomitant]
     Active Substance: PANTOPRAZOLE
     Dosage: UNK
     Route: 048
  6. LOSARTAN [Concomitant]
     Active Substance: LOSARTAN
     Indication: Product used for unknown indication
     Dosage: 100 MG, QD
     Route: 048
     Dates: start: 20211015
  7. LOSARTAN [Concomitant]
     Active Substance: LOSARTAN
     Dosage: UNK, QD
     Route: 048
  8. ASPIRIN [Concomitant]
     Active Substance: ASPIRIN
     Indication: Myocardial infarction
     Dosage: 81 MG, QD
     Route: 048
     Dates: start: 202110
  9. ASPIRIN [Concomitant]
     Active Substance: ASPIRIN
     Dosage: UNK, QD
     Route: 048
  10. KEFLEX [Concomitant]
     Active Substance: CEPHALEXIN
     Indication: Product used for unknown indication
     Dosage: UNK (4 TABLETS)
     Route: 065
     Dates: start: 20230221
  11. AMMONIUM CHLORIDE\CAFFEINE [Concomitant]
     Active Substance: AMMONIUM CHLORIDE\CAFFEINE
     Indication: Product used for unknown indication
     Dosage: UNK (FOR 5 DAYS STARTING TODAY)
     Route: 065
     Dates: start: 202304

REACTIONS (26)
  - Death [Fatal]
  - Atelectasis [Unknown]
  - Acute coronary syndrome [Unknown]
  - Diabetes mellitus [Unknown]
  - Myocardial infarction [Unknown]
  - Angina pectoris [Unknown]
  - Intestinal obstruction [Unknown]
  - Blood pressure increased [Unknown]
  - Rectal haemorrhage [Recovered/Resolved]
  - Carcinoid tumour of the small bowel [Unknown]
  - Malignant neoplasm progression [Unknown]
  - Diarrhoea [Unknown]
  - Abdominal pain [Unknown]
  - Malaise [Unknown]
  - Pilonidal disease [Unknown]
  - Dehydration [Unknown]
  - Pain [Unknown]
  - Blood pressure diastolic increased [Unknown]
  - Haematoma [Unknown]
  - Localised infection [Unknown]
  - Fall [Unknown]
  - Oedema peripheral [Unknown]
  - Pain in extremity [Unknown]
  - Rash [Unknown]
  - Nausea [Unknown]
  - Vomiting [Unknown]

NARRATIVE: CASE EVENT DATE: 20170926
